FAERS Safety Report 5932836-X (Version None)
Quarter: 2008Q4

REPORT INFORMATION
  Report Type: 
  Country: None (occurrence: None)
  Receive Date: 20081027
  Receipt Date: 20081027
  Transmission Date: 20090506
  Serious: Yes (Hospitalization)
  Sender: FDA-Public Use
  Company Number: None

PATIENT
  Age: 26 Year
  Sex: Female
  Weight: 49.8957 kg

DRUGS (4)
  1. DEXATRIM MAX CHATTEM, INC. [Suspect]
     Indication: DRUG HYPERSENSITIVITY
     Dosage: 1-2 PILLS A DAY ONCE A DAY
     Dates: start: 20081024, end: 20081024
  2. BENADRYL [Concomitant]
  3. ZANTAC [Concomitant]
  4. PREDNISONE TAB [Concomitant]

REACTIONS (6)
  - DRUG HYPERSENSITIVITY [None]
  - DYSPHAGIA [None]
  - DYSPNOEA [None]
  - ENERGY INCREASED [None]
  - NERVOUSNESS [None]
  - PALPITATIONS [None]
